FAERS Safety Report 25823103 (Version 1)
Quarter: 2025Q3

REPORT INFORMATION
  Report Type: Spontaneous
  Country: TW (occurrence: TW)
  Receive Date: 20250919
  Receipt Date: 20250919
  Transmission Date: 20251020
  Serious: Yes (Hospitalization, Other)
  Sender: Haleon PLC
  Company Number: TW-002147023-NVSC2025TW143593

PATIENT
  Age: 38 Year
  Sex: Female
  Weight: 60 kg

DRUGS (13)
  1. VOLTAREN [Suspect]
     Active Substance: DICLOFENAC SODIUM
     Indication: Analgesic therapy
     Dosage: 75 MG, BID (SLOW RELEASED 1 TABLET)
     Route: 048
     Dates: start: 20250811, end: 20250813
  2. NEXIUM [Suspect]
     Active Substance: ESOMEPRAZOLE MAGNESIUM
     Indication: Abdominal discomfort
     Dosage: 44.5 MG, QD (1.0 TAB)
     Route: 048
     Dates: start: 20250721, end: 20250804
  3. FAMOTIDINE [Suspect]
     Active Substance: FAMOTIDINE
     Indication: Abdominal discomfort
     Dosage: 20 MG, BID (1.0 TAB)
     Route: 048
     Dates: start: 20250804, end: 20250815
  4. PREDNISOLONE [Concomitant]
     Active Substance: PREDNISOLONE
     Indication: Product used for unknown indication
     Dosage: 5 MG, QD
  5. PREDNISOLONE [Concomitant]
     Active Substance: PREDNISOLONE
     Dosage: 7.5 MG, QD
  6. METHOTREXATE [Suspect]
     Active Substance: METHOTREXATE
     Indication: Chemotherapy
     Dates: start: 20250805, end: 20250805
  7. DEXAMETHASONE [Concomitant]
     Active Substance: DEXAMETHASONE
     Indication: Product used for unknown indication
  8. Betamycin [Concomitant]
     Indication: Product used for unknown indication
     Dosage: 4.5 G, Q6H
  9. ACETAMINOPHEN [Concomitant]
     Active Substance: ACETAMINOPHEN
     Indication: Product used for unknown indication
  10. LEUCOVORIN [Concomitant]
     Active Substance: LEUCOVORIN\LEUCOVORIN CALCIUM
     Indication: Product used for unknown indication
  11. FILGRASTIM [Concomitant]
     Active Substance: FILGRASTIM
     Indication: Product used for unknown indication
  12. ESOMEPRAZOLE [Concomitant]
     Active Substance: ESOMEPRAZOLE
     Indication: Product used for unknown indication
     Dosage: 40 MG, QD
  13. NEURONTIN [Suspect]
     Active Substance: GABAPENTIN
     Indication: Neuralgia
     Dosage: 300.0 MG, BID (1.0 CAP)
     Route: 048
     Dates: start: 20250731, end: 20250818

REACTIONS (4)
  - Stevens-Johnson syndrome [Recovering/Resolving]
  - Septic pulmonary embolism [Unknown]
  - Neoplasm malignant [Unknown]
  - Disseminated intravascular coagulation [Unknown]

NARRATIVE: CASE EVENT DATE: 20250812
